FAERS Safety Report 13163350 (Version 1)
Quarter: 2017Q1

REPORT INFORMATION
  Report Type: Spontaneous
  Country: US (occurrence: US)
  Receive Date: 20170127
  Receipt Date: 20170127
  Transmission Date: 20170428
  Serious: Yes (Life-Threatening)
  Sender: FDA-Public Use
  Company Number: None

PATIENT
  Age: 35 Year
  Sex: Male
  Weight: 93 kg

DRUGS (1)
  1. REMICADE [Suspect]
     Active Substance: INFLIXIMAB

REACTIONS (1)
  - Prostate cancer [None]

NARRATIVE: CASE EVENT DATE: 20170127
